FAERS Safety Report 22195093 (Version 1)
Quarter: 2023Q2

REPORT INFORMATION
  Report Type: Spontaneous
  Country: FR (occurrence: FR)
  Receive Date: 20230411
  Receipt Date: 20230411
  Transmission Date: 20230722
  Serious: Yes (Death, Other)
  Sender: FDA-Public Use
  Company Number: FR-DENTSPLY-2023SCDP000102

PATIENT
  Age: 88 Year
  Sex: Male
  Weight: 40 kg

DRUGS (3)
  1. XYLOCAINE [Suspect]
     Active Substance: LIDOCAINE HYDROCHLORIDE
     Indication: Bladder catheterisation
     Dosage: UNK DOSE OF XYLOCAINE GEL
     Dates: start: 20230316
  2. LANSOPRAZOLE [Concomitant]
     Active Substance: LANSOPRAZOLE
     Indication: Product used for unknown indication
     Dosage: UNK
     Dates: start: 20230320
  3. CALCIUM CARBONATE\SODIUM ALGINATE [Concomitant]
     Active Substance: CALCIUM CARBONATE\SODIUM ALGINATE
     Indication: Product used for unknown indication
     Dosage: UNK
     Dates: start: 20230319

REACTIONS (6)
  - Death [Fatal]
  - Nausea [None]
  - Pain [None]
  - Fatigue [None]
  - Asthma [None]
  - Vomiting [None]

NARRATIVE: CASE EVENT DATE: 20230316
